FAERS Safety Report 4774783-5 (Version None)
Quarter: 2005Q3

REPORT INFORMATION
  Report Type: 
  Country: None (occurrence: None)
  Receive Date: 20050919
  Receipt Date: 20050914
  Transmission Date: 20060218
  Serious: Yes (Other)
  Sender: FDA-Public Use
  Company Number: 2005-BP-16238RO

PATIENT
  Sex: Female

DRUGS (1)
  1. PREDNISONE TAB [Suspect]

REACTIONS (22)
  - ABASIA [None]
  - ASTHENIA [None]
  - BALANCE DISORDER [None]
  - BLOOD CHOLESTEROL INCREASED [None]
  - BONE DISORDER [None]
  - DIABETES MELLITUS INADEQUATE CONTROL [None]
  - DIZZINESS [None]
  - DYSARTHRIA [None]
  - DYSKINESIA [None]
  - FALL [None]
  - GASTRIC PH DECREASED [None]
  - HYPERTENSION [None]
  - LIGAMENT INJURY [None]
  - MUSCLE STRAIN [None]
  - MUSCULAR WEAKNESS [None]
  - NEUROPATHY [None]
  - OSTEOGENESIS IMPERFECTA [None]
  - PAIN IN EXTREMITY [None]
  - SWELLING [None]
  - TOE AMPUTATION [None]
  - VISUAL ACUITY REDUCED [None]
  - WEIGHT INCREASED [None]
